FAERS Safety Report 5588924-3 (Version None)
Quarter: 2007Q4

REPORT INFORMATION
  Report Type: 
  Country: None (occurrence: None)
  Receive Date: 20071212
  Receipt Date: 20070917
  Transmission Date: 20080405
  Serious: No
  Sender: FDA-Public Use
  Company Number: 2007RL000409

PATIENT
  Age: 68 Year
  Sex: Male

DRUGS (9)
  1. LOVAZA [Suspect]
     Indication: BLOOD TRIGLYCERIDES INCREASED
     Dosage: 1 GM;BID;PO
     Route: 048
     Dates: start: 20070914
  2. ASPIRIN [Concomitant]
  3. COUMADIN [Concomitant]
  4. TOPROL-XL [Concomitant]
  5. IMDUR [Concomitant]
  6. LASIX [Concomitant]
  7. LISINOPRIL [Concomitant]
  8. ALLOPURINOL [Concomitant]
  9. FOLIC ACID [Concomitant]

REACTIONS (3)
  - DYSGEUSIA [None]
  - ERUCTATION [None]
  - STOMACH DISCOMFORT [None]
